FAERS Safety Report 18758191 (Version 2)
Quarter: 2021Q1

REPORT INFORMATION
  Report Type: Spontaneous
  Country: GB (occurrence: GB)
  Receive Date: 20210119
  Receipt Date: 20210130
  Transmission Date: 20210419
  Serious: Yes (Other)
  Sender: FDA-Public Use
  Company Number: GB-SA-2021SA012854

PATIENT
  Sex: Male

DRUGS (2)
  1. TAMSULOSIN HYDROCHLORIDE. [Suspect]
     Active Substance: TAMSULOSIN HYDROCHLORIDE
     Indication: PROSTATIC DISORDER
     Dosage: UNK
     Route: 065
  2. NITROFURANTOIN. [Interacting]
     Active Substance: NITROFURANTOIN
     Indication: URINARY TRACT INFECTION
     Dosage: UNK

REACTIONS (4)
  - Fatigue [Recovered/Resolved]
  - Myalgia [Recovered/Resolved]
  - Drug interaction [Unknown]
  - Urinary tract infection [Unknown]
